FAERS Safety Report 4269949-7 (Version None)
Quarter: 2004Q1

REPORT INFORMATION
  Report Type: 
  Country: None (occurrence: None)
  Receive Date: 20040114
  Receipt Date: 20030925
  Transmission Date: 20041129
  Serious: Yes (Hospitalization, Other)
  Sender: FDA-Public Use
  Company Number: PHEH2003US08839

PATIENT
  Age: 10 Year
  Sex: Male

DRUGS (14)
  1. GLEEVEC [Suspect]
     Indication: ACUTE LYMPHOCYTIC LEUKAEMIA
     Dosage: 200 MG, QD
     Route: 048
     Dates: start: 20020101
  2. GLEEVEC [Suspect]
     Dosage: 400 MG, QD
     Route: 048
     Dates: start: 20020701
  3. GLEEVEC [Suspect]
     Dosage: NO DRUG
     Dates: start: 20021001, end: 20021115
  4. GLEEVEC [Suspect]
     Dosage: 200 MG, QD
     Route: 048
     Dates: start: 20030113, end: 20030120
  5. GLEEVEC [Suspect]
     Dosage: 300 MG, QD
     Route: 048
     Dates: start: 20030220
  6. GLEEVEC [Suspect]
     Dosage: 200 MG, QD
     Route: 048
     Dates: start: 20030428, end: 20030727
  7. GLEEVEC [Suspect]
     Dosage: 400 MG, QD
     Route: 048
     Dates: start: 20030728
  8. BACTRIM [Concomitant]
     Indication: PROPHYLAXIS
     Dosage: UNK, BIW
  9. MERCAPTOPURINE [Concomitant]
     Dosage: 25-50 MG
  10. METHOTREXATE [Concomitant]
     Dosage: 11.25 MG, QW
  11. ZANTAC [Concomitant]
     Dosage: 75 MG, BID
  12. DECADRON [Concomitant]
     Dosage: 6MG/M2/D X5D/MO
  13. CYTARABINE [Concomitant]
  14. CYCLOPHOSPHAMIDE [Suspect]
     Dosage: 1000MG/M2

REACTIONS (7)
  - CELLULITIS [None]
  - CHROMATURIA [None]
  - HAEMATURIA [None]
  - NEPHROLITHIASIS [None]
  - PAIN IN EXTREMITY [None]
  - PERIANAL ABSCESS [None]
  - SINUSITIS [None]
